FAERS Safety Report 8013687-1 (Version None)
Quarter: 2011Q4

REPORT INFORMATION
  Report Type: 
  Country: None (occurrence: None)
  Receive Date: 20111229
  Receipt Date: 20111227
  Transmission Date: 20120403
  Serious: No
  Sender: FDA-Public Use
  Company Number: US-BAYER-2011-007158

PATIENT
  Sex: Female

DRUGS (3)
  1. SAFYRAL [Suspect]
  2. YASMIN [Suspect]
     Indication: MENORRHAGIA
  3. YASMIN [Suspect]
     Indication: CONTRACEPTION
     Dosage: UNK
     Route: 048
     Dates: start: 20080101, end: 20100101

REACTIONS (5)
  - DIZZINESS [None]
  - MIGRAINE [None]
  - HEADACHE [None]
  - PHOTOPHOBIA [None]
  - HYPERACUSIS [None]
